FAERS Safety Report 6802069-3 (Version None)
Quarter: 2010Q2

REPORT INFORMATION
  Report Type: 
  Country: None (occurrence: None)
  Receive Date: 20100629
  Receipt Date: 20070816
  Transmission Date: 20101027
  Serious: No
  Sender: FDA-Public Use
  Company Number: US-PFIZER INC-2007059114

PATIENT
  Sex: Female
  Weight: 55 kg

DRUGS (2)
  1. ALDACTONE [Suspect]
     Indication: ACNE
     Dosage: 1 EVERY NA DAYS
     Dates: start: 20070101, end: 20070601
  2. ALDACTONE [Suspect]
     Indication: ALOPECIA

REACTIONS (6)
  - DRUG INEFFECTIVE [None]
  - EYE PAIN [None]
  - INSOMNIA [None]
  - PAIN [None]
  - URTICARIA [None]
  - VISION BLURRED [None]
